FAERS Safety Report 7310323-4 (Version None)
Quarter: 2011Q1

REPORT INFORMATION
  Report Type: 
  Country: None (occurrence: None)
  Receive Date: 20110224
  Receipt Date: 20110215
  Transmission Date: 20110831
  Serious: Yes (Death, Life-Threatening)
  Sender: FDA-Public Use
  Company Number: FR-BAXTER-2011BH003823

PATIENT
  Age: 80 Year
  Sex: Male

DRUGS (2)
  1. TISSUCOL/TISSEEL KIT STIM3 [Suspect]
     Indication: KNEE ARTHROPLASTY
     Route: 065
     Dates: start: 20110209, end: 20110209
  2. LOVENOX [Concomitant]
     Indication: THROMBOSIS PROPHYLAXIS
     Route: 058

REACTIONS (1)
  - PULMONARY EMBOLISM [None]
